FAERS Safety Report 9047102 (Version 1)
Quarter: 2013Q1

REPORT INFORMATION
  Report Type: Spontaneous
  Country: US (occurrence: None)
  Receive Date: 20130130
  Receipt Date: 20130130
  Transmission Date: 20140127
  Serious: Yes (Hospitalization)
  Sender: FDA-Public Use
  Company Number: None

PATIENT
  Sex: Male
  Weight: 105.9 kg

DRUGS (2)
  1. DIGOXIN [Suspect]
     Route: 048
     Dates: start: 20111028, end: 20121204
  2. ACETAMINOPHEN\HYDROCODONE [Suspect]
     Route: 048
     Dates: start: 20110224, end: 20120905

REACTIONS (6)
  - Confusional state [None]
  - Hallucination [None]
  - Decreased appetite [None]
  - Delirium [None]
  - Dehydration [None]
  - Malignant neoplasm progression [None]
